FAERS Safety Report 8313277-7 (Version None)
Quarter: 2012Q2

REPORT INFORMATION
  Report Type: 
  Country: None (occurrence: None)
  Receive Date: 20120426
  Receipt Date: 20120418
  Transmission Date: 20120825
  Serious: Yes (Hospitalization)
  Sender: FDA-Public Use
  Company Number: US-BAYER-2011-075588

PATIENT
  Age: 42 Year
  Sex: Female

DRUGS (2)
  1. IBUPROFEN [Concomitant]
     Dosage: 600 MG, PRN
     Route: 048
  2. YAZ [Suspect]
     Indication: ACNE
     Dosage: UNK
     Dates: start: 20090101, end: 20100101

REACTIONS (1)
  - DEEP VEIN THROMBOSIS [None]
